FAERS Safety Report 24108118 (Version 1)
Quarter: 2024Q3

REPORT INFORMATION
  Report Type: Spontaneous
  Country: NL (occurrence: NL)
  Receive Date: 20240718
  Receipt Date: 20240718
  Transmission Date: 20241017
  Serious: Yes (Hospitalization)
  Sender: TERSERA THERAPEUTICS
  Company Number: NL-AstraZeneca-2022A302257

PATIENT

DRUGS (2)
  1. GOSERELIN [Suspect]
     Active Substance: GOSERELIN
     Indication: Prostate cancer
     Dosage: 10.8 MG, EVERY THREE MONTHS
     Route: 058
     Dates: start: 20220428
  2. ZOLADEX [Suspect]
     Active Substance: GOSERELIN ACETATE
     Indication: Prostate cancer
     Dosage: UNK
     Route: 065

REACTIONS (1)
  - Spinal cord injury [Not Recovered/Not Resolved]

NARRATIVE: CASE EVENT DATE: 20220819
